FAERS Safety Report 12302788 (Version 1)
Quarter: 2016Q2

REPORT INFORMATION
  Report Type: Spontaneous
  Country: US (occurrence: US)
  Receive Date: 20160425
  Receipt Date: 20160425
  Transmission Date: 20160815
  Serious: No
  Sender: FDA-Public Use
  Company Number: US-LUPIN PHARMACEUTICALS INC.-2016-00735

PATIENT
  Sex: Male

DRUGS (1)
  1. VALSARTAN. [Suspect]
     Active Substance: VALSARTAN
     Indication: BLOOD PRESSURE INCREASED
     Route: 065

REACTIONS (2)
  - Drug ineffective [Unknown]
  - Blood pressure inadequately controlled [Unknown]
